FAERS Safety Report 9442320 (Version 1)
Quarter: 2013Q3

REPORT INFORMATION
  Report Type: Spontaneous
  Country: IN (occurrence: IN)
  Receive Date: 20130806
  Receipt Date: 20130806
  Transmission Date: 20140515
  Serious: Yes (Other)
  Sender: FDA-Public Use
  Company Number: IN-009507513-1307IND014647

PATIENT
  Age: 16 Year
  Sex: Female

DRUGS (1)
  1. NOVELON [Suspect]
     Indication: DYSFUNCTIONAL UTERINE BLEEDING
     Dosage: UNK UNK, QD
     Route: 048
     Dates: start: 20130720, end: 201307

REACTIONS (2)
  - Dizziness [Recovered/Resolved]
  - Head discomfort [Recovered/Resolved]
